FAERS Safety Report 4512394-7 (Version None)
Quarter: 2004Q4

REPORT INFORMATION
  Report Type: 
  Country: None (occurrence: None)
  Receive Date: 20041123
  Receipt Date: 20041108
  Transmission Date: 20050328
  Serious: Yes (Congenital Anomaly, Other)
  Sender: FDA-Public Use
  Company Number: 2004-BP-11941RO

PATIENT
  Sex: 0

DRUGS (6)
  1. AMINOPHYLLINE ORAL SOLUTION USP, 105MG/5ML (AMINOPHYLLINE) [Suspect]
     Dosage: IU
     Route: 015
  2. CLOTRIMAZOLE LOZENGES USP, 10MG (CLOTRIMAZOLE) [Concomitant]
     Dosage: IU
     Route: 015
  3. CODEINE SUL TAB [Suspect]
     Dosage: IU
     Route: 015
  4. DEXAMETHASONE [Suspect]
     Dosage: IU
     Route: 015
  5. DIAZEPAM [Suspect]
     Dosage: IU
     Route: 015
  6. HYDROCHLOROTHIAZIDE [Suspect]
     Dosage: IU
     Route: 015

REACTIONS (4)
  - DRUG EXPOSURE DURING PREGNANCY [None]
  - ENCEPHALOCELE [None]
  - NEURAL TUBE DEFECT [None]
  - SPINA BIFIDA [None]
